FAERS Safety Report 15308358 (Version 7)
Quarter: 2019Q3

REPORT INFORMATION
  Report Type: Report from Study
  Country: US (occurrence: US)
  Receive Date: 20180822
  Receipt Date: 20190905
  Transmission Date: 20191004
  Serious: Yes (Hospitalization)
  Sender: FDA-Public Use
  Company Number: US-ACTELION-A-US2018-177626

PATIENT
  Age: 60 Year
  Sex: Female

DRUGS (21)
  1. CARDIZEM [Concomitant]
     Active Substance: DILTIAZEM HYDROCHLORIDE
  2. METHOTREXATE. [Concomitant]
     Active Substance: METHOTREXATE
  3. SPIRONOLACTONE. [Concomitant]
     Active Substance: SPIRONOLACTONE
     Dosage: 25 MG, UNK
  4. CARTIA XT [Concomitant]
     Active Substance: DILTIAZEM HYDROCHLORIDE
     Dosage: 240 MG
  5. METHYLPHENIDATE. [Concomitant]
     Active Substance: METHYLPHENIDATE
  6. TRAMADOL. [Concomitant]
     Active Substance: TRAMADOL
  7. WARFARIN [Concomitant]
     Active Substance: WARFARIN
  8. AMIODARONE [Concomitant]
     Active Substance: AMIODARONE
     Dosage: 200 MG, UNK
  9. FOLIC ACID. [Concomitant]
     Active Substance: FOLIC ACID
  10. METOLAZONE. [Concomitant]
     Active Substance: METOLAZONE
  11. POTASSIUM CHLORIDE. [Concomitant]
     Active Substance: POTASSIUM CHLORIDE
  12. DILTIAZEM. [Concomitant]
     Active Substance: DILTIAZEM
  13. PENTOXIFYLLINE. [Concomitant]
     Active Substance: PENTOXIFYLLINE
  14. DIGOXIN. [Concomitant]
     Active Substance: DIGOXIN
  15. COUMADIN [Concomitant]
     Active Substance: WARFARIN SODIUM
     Dosage: 1 MG, UNK
  16. TRACLEER [Suspect]
     Active Substance: BOSENTAN
     Indication: PULMONARY ARTERIAL HYPERTENSION
     Dosage: 62.5 MG, BID
     Route: 048
     Dates: start: 20090227, end: 20190807
  17. LINZESS [Concomitant]
     Active Substance: LINACLOTIDE
  18. DOXYCYCLINE. [Concomitant]
     Active Substance: DOXYCYCLINE
  19. ZOLPIDEM [Concomitant]
     Active Substance: ZOLPIDEM TARTRATE
  20. FUROSEMIDE. [Concomitant]
     Active Substance: FUROSEMIDE
     Dosage: 20 MG, UNK
  21. LEVOTHYROXINE. [Concomitant]
     Active Substance: LEVOTHYROXINE
     Dosage: 75 MG

REACTIONS (7)
  - Nausea [Unknown]
  - Generalised oedema [Recovered/Resolved]
  - Chronic obstructive pulmonary disease [Recovered/Resolved]
  - Vertigo [Unknown]
  - Hospitalisation [Unknown]
  - Dizziness [Unknown]
  - Dyspnoea [Recovered/Resolved]

NARRATIVE: CASE EVENT DATE: 201807
